FAERS Safety Report 7582653-2 (Version None)
Quarter: 2011Q2

REPORT INFORMATION
  Report Type: 
  Country: None (occurrence: None)
  Receive Date: 20110630
  Receipt Date: 20110628
  Transmission Date: 20111010
  Serious: Yes (Hospitalization, Other)
  Sender: FDA-Public Use
  Company Number: US-PFIZER INC-2011144770

PATIENT
  Age: 94 Year
  Sex: Male
  Weight: 75 kg

DRUGS (2)
  1. WARFARIN SODIUM [Concomitant]
     Indication: ATRIAL FIBRILLATION
     Dosage: UNK
  2. DILANTIN [Suspect]
     Indication: CONVULSION
     Dosage: 100 MG, 2X/DAY
     Route: 048

REACTIONS (6)
  - MENTAL IMPAIRMENT [None]
  - SEDATION [None]
  - DYSPHAGIA [None]
  - ANTICONVULSANT DRUG LEVEL ABNORMAL [None]
  - MEMORY IMPAIRMENT [None]
  - CONFUSIONAL STATE [None]
